FAERS Safety Report 22528134 (Version 2)
Quarter: 2023Q4

REPORT INFORMATION
  Report Type: Spontaneous
  Country: CA (occurrence: CA)
  Receive Date: 20230607
  Receipt Date: 20231101
  Transmission Date: 20240110
  Serious: Yes (Hospitalization)
  Sender: FDA-Public Use
  Company Number: CA-ROCHE-1923187

PATIENT
  Age: 60 Year
  Sex: Female

DRUGS (3)
  1. CAPECITABINE [Suspect]
     Active Substance: CAPECITABINE
     Indication: Product used for unknown indication
  2. TYKERB [Suspect]
     Active Substance: LAPATINIB DITOSYLATE
     Indication: Breast cancer metastatic
     Route: 048
  3. TYKERB [Suspect]
     Active Substance: LAPATINIB DITOSYLATE
     Indication: Breast cancer metastatic
     Route: 048

REACTIONS (11)
  - Fall [Unknown]
  - Limb injury [Recovered/Resolved]
  - Metastases to central nervous system [Recovered/Resolved]
  - Gait disturbance [Recovered/Resolved]
  - Brain neoplasm [Recovered/Resolved]
  - Pelvic fracture [Recovered/Resolved]
  - Asthenia [Recovered/Resolved]
  - Spinal fracture [Recovered/Resolved]
  - Confusional state [Recovered/Resolved]
  - Gait inability [Recovered/Resolved]
  - Hypoacusis [Recovered/Resolved]
